FAERS Safety Report 7701460 (Version 4)
Quarter: 2013Q2

REPORT INFORMATION
  Report Type: Spontaneous
  Country: US (occurrence: US)
  Receive Date: 20101209
  Receipt Date: 20130501
  Transmission Date: 20140414
  Serious: Yes (Death, Hospitalization, Other)
  Sender: FDA-Public Use
  Company Number: US-B.I. PHARMACEUTICALS,INC./RIDGEFIELD-2010-BP-13361BP

PATIENT
  Age: 69 Year
  Sex: Male
  Weight: 74.84 kg

DRUGS (18)
  1. PRADAXA [Suspect]
     Indication: ATRIAL FIBRILLATION
     Dosage: 300 MG
     Route: 048
     Dates: start: 20101121, end: 20101221
  2. MULTAQ [Concomitant]
     Indication: ATRIAL FIBRILLATION
     Dosage: 800 MG
     Route: 048
  3. DIGOXIN [Concomitant]
     Indication: ATRIAL FIBRILLATION
     Dosage: 125 MCG
     Route: 048
  4. AVODART [Concomitant]
     Indication: PROSTATIC DISORDER
     Route: 048
  5. AVODART [Concomitant]
     Indication: URINARY TRACT DISORDER
  6. UROXATRAL [Concomitant]
     Indication: URINARY TRACT DISORDER
     Dosage: 10 MG
     Route: 048
  7. UROXATRAL [Concomitant]
     Indication: PROSTATIC DISORDER
  8. SOTALOL [Concomitant]
     Indication: ATRIAL FIBRILLATION
     Route: 048
  9. ALIGN PROBIOTIC [Concomitant]
     Indication: PROBIOTIC THERAPY
  10. CO-ENZYME Q10 [Concomitant]
     Indication: ROUTINE HEALTH MAINTENANCE
     Dosage: 50 MG
  11. LASIX [Concomitant]
     Indication: FLUID RETENTION
     Route: 048
  12. MAGNESIUM [Concomitant]
     Indication: MINERAL SUPPLEMENTATION
     Dosage: 1000 MG
  13. PRESSOR VISION [Concomitant]
     Indication: ROUTINE HEALTH MAINTENANCE
  14. Q-UROL [Concomitant]
     Indication: PROSTATIC DISORDER
  15. Q-UROL [Concomitant]
     Indication: URINARY TRACT DISORDER
  16. RED YEAST RICE EXTRACT [Concomitant]
     Indication: BLOOD CHOLESTEROL INCREASED
     Route: 048
  17. VITAMIN D [Concomitant]
     Indication: ROUTINE HEALTH MAINTENANCE
     Dosage: 2000 U
  18. YES OMEGA [Concomitant]

REACTIONS (8)
  - Cerebrovascular accident [Fatal]
  - Haemorrhagic stroke [Unknown]
  - Cerebral haemorrhage [Unknown]
  - Hemiplegia [Unknown]
  - Diarrhoea [Recovered/Resolved]
  - Faeces discoloured [Not Recovered/Not Resolved]
  - Abnormal faeces [Not Recovered/Not Resolved]
  - Diarrhoea [Not Recovered/Not Resolved]
